FAERS Safety Report 9726925 (Version 2)
Quarter: 2014Q1

REPORT INFORMATION
  Report Type: Spontaneous
  Country: DK (occurrence: DK)
  Receive Date: 20131203
  Receipt Date: 20140307
  Transmission Date: 20141002
  Serious: Yes (Other)
  Sender: FDA-Public Use
  Company Number: DK-PFIZER INC-2013342503

PATIENT
  Sex: Male

DRUGS (3)
  1. GABAPENTIN PFIZER [Suspect]
     Indication: BACK PAIN
     Dosage: 1200 MG, 3X/DAY
     Dates: start: 2003
  2. GABAPENTIN PFIZER [Suspect]
     Indication: BACK INJURY
  3. MORPHINE SULFATE [Suspect]
     Dosage: UNK
     Dates: end: 201212

REACTIONS (3)
  - Drug withdrawal syndrome [Unknown]
  - Suicidal ideation [Unknown]
  - Insomnia [Unknown]
